FAERS Safety Report 18748462 (Version 1)
Quarter: 2021Q1

REPORT INFORMATION
  Report Type: Spontaneous
  Country: ES (occurrence: ES)
  Receive Date: 20210115
  Receipt Date: 20210115
  Transmission Date: 20210419
  Serious: Yes (Hospitalization)
  Sender: FDA-Public Use
  Company Number: ES-PFIZER INC-2021027076

PATIENT
  Age: 51 Year
  Sex: Female

DRUGS (3)
  1. BACLOFEN. [Suspect]
     Active Substance: BACLOFEN
     Indication: TRIGEMINAL NEURALGIA
     Dosage: 50 MG, 3X/DAY (FREQUENCY; 8 HOURS)
     Route: 048
     Dates: start: 20201211, end: 20201213
  2. FENTANIL [Suspect]
     Active Substance: FENTANYL
     Indication: TRIGEMINAL NEURALGIA
     Dosage: 12 UG
     Route: 062
     Dates: start: 20201211, end: 20201213
  3. PHENYTOIN SODIUM. [Suspect]
     Active Substance: PHENYTOIN SODIUM
     Indication: TRIGEMINAL NEURALGIA
     Dosage: 100 MG, 3X/DAY (FREQUENCY: 8 HOURS)
     Route: 048
     Dates: start: 20201211, end: 20201213

REACTIONS (2)
  - Somnolence [Recovered/Resolved]
  - Clonic convulsion [Recovered/Resolved]

NARRATIVE: CASE EVENT DATE: 20201213
